FAERS Safety Report 11620613 (Version 1)
Quarter: 2015Q4

REPORT INFORMATION
  Report Type: Spontaneous
  Country: IT (occurrence: IT)
  Receive Date: 20151012
  Receipt Date: 20151012
  Transmission Date: 20160304
  Serious: Yes (Death)
  Sender: FDA-Public Use
  Company Number: IT-MYLANLABS-2015M1034382

PATIENT

DRUGS (3)
  1. DEPO-MEDROL [Concomitant]
     Active Substance: METHYLPREDNISOLONE ACETATE
     Indication: SPONDYLOARTHROPATHY
     Route: 065
  2. LEVOBUPIVACAINE [Suspect]
     Active Substance: LEVOBUPIVACAINE
     Indication: SPONDYLOARTHROPATHY
     Route: 065
  3. LIDOCAINE. [Suspect]
     Active Substance: LIDOCAINE
     Indication: SPONDYLOARTHROPATHY
     Route: 065

REACTIONS (5)
  - Drug administered at inappropriate site [Fatal]
  - Cardiac arrest [Fatal]
  - Respiratory arrest [Fatal]
  - Shock [Fatal]
  - Hypotension [Fatal]
